FAERS Safety Report 7883414-7 (Version None)
Quarter: 2011Q4

REPORT INFORMATION
  Report Type: 
  Country: None (occurrence: None)
  Receive Date: 20111102
  Receipt Date: 20111021
  Transmission Date: 20120403
  Serious: Yes (Hospitalization, Other)
  Sender: FDA-Public Use
  Company Number: US-BAYER-2011-073684

PATIENT
  Age: 34 Year
  Sex: Female
  Weight: 84 kg

DRUGS (5)
  1. NAPROXEN SODIUM AND PSEUDOEPHEDRINE HYDROCHLORIDE [Concomitant]
  2. FLEXERIL [Concomitant]
  3. YAZ [Suspect]
     Indication: MOOD SWINGS
  4. COUMADIN [Concomitant]
  5. YAZ [Suspect]
     Indication: MENSTRUATION IRREGULAR
     Dosage: UNK
     Dates: start: 20090416, end: 20100130

REACTIONS (4)
  - THROMBOSIS [None]
  - PULMONARY EMBOLISM [None]
  - INJURY [None]
  - PLEURAL EFFUSION [None]
